FAERS Safety Report 6164862-2 (Version None)
Quarter: 2009Q2

REPORT INFORMATION
  Report Type: 
  Country: None (occurrence: None)
  Receive Date: 20090423
  Receipt Date: 20090422
  Transmission Date: 20091009
  Serious: Yes (Death)
  Sender: FDA-Public Use
  Company Number: US-B.I. PHARMACEUTICALS,INC./RIDGEFIELD-2009-BP-00335BP

PATIENT
  Sex: Male

DRUGS (21)
  1. SPIRIVA [Suspect]
     Indication: DYSPNOEA
     Dosage: 18MCG
     Route: 055
     Dates: start: 20081001, end: 20081227
  2. SPIRIVA [Suspect]
     Indication: CHRONIC OBSTRUCTIVE PULMONARY DISEASE
  3. SPIRIVA [Suspect]
     Indication: LUNG NEOPLASM MALIGNANT
  4. XANAX [Concomitant]
  5. METOCLOPRAMIDE [Concomitant]
     Indication: NAUSEA
     Dosage: 10MG
  6. NEXIUM [Concomitant]
     Indication: GASTROINTESTINAL DISORDER
     Dosage: 40MG
  7. VYTORIN [Concomitant]
     Dosage: 10MG
  8. CARTIA XT [Concomitant]
     Indication: CARDIAC DISORDER
     Dosage: 120MG
  9. METAZAPINE [Concomitant]
     Dosage: 30MG
  10. LEVOTHYROXINE SODIUM [Concomitant]
     Dosage: .088MG
  11. METOPROLOL SUCCINATE [Concomitant]
     Indication: HEART RATE IRREGULAR
     Dosage: 100MG
  12. ENULOSE SYRUP [Concomitant]
  13. FLUTICASONE [Concomitant]
  14. VENTOLIN [Concomitant]
  15. MEGESTROL ACETATE [Concomitant]
  16. VITAMINS [Concomitant]
  17. STOOL SOFTENERS [Concomitant]
  18. ALEVE [Concomitant]
  19. OXYCODONE HCL AND ACETAMINOPHEN [Concomitant]
  20. DOC-Q-LACE [Concomitant]
     Dosage: 200MG
  21. ASPIRIN [Concomitant]
     Dosage: 81MG

REACTIONS (2)
  - DEATH [None]
  - LUNG NEOPLASM MALIGNANT [None]
